FAERS Safety Report 9502886 (Version 3)
Quarter: 2013Q3

REPORT INFORMATION
  Report Type: Report from Study
  Country: NL (occurrence: NL)
  Receive Date: 20130906
  Receipt Date: 20130912
  Transmission Date: 20140515
  Serious: Yes (Death, Hospitalization, Other)
  Sender: FDA-Public Use
  Company Number: NL-CELGENEUS-114-21880-13072690

PATIENT
  Age: 76 Year
  Sex: Male
  Weight: 50 kg

DRUGS (6)
  1. REVLIMID [Suspect]
     Indication: PLASMA CELL MYELOMA
     Route: 048
     Dates: start: 20121106, end: 201211
  2. MELPHALAN [Suspect]
     Indication: PLASMA CELL MYELOMA
     Route: 065
  3. PREDNISONE [Suspect]
     Indication: PLASMA CELL MYELOMA
     Route: 065
  4. DEXAMETHASONE [Concomitant]
     Indication: METASTASES TO CENTRAL NERVOUS SYSTEM
     Route: 041
     Dates: start: 20130622
  5. DEXAMETHASONE [Concomitant]
     Indication: PLASMA CELL MYELOMA
     Route: 048
     Dates: start: 20130304, end: 20130602
  6. TRAMADOL [Concomitant]
     Indication: ANALGESIC THERAPY
     Route: 048
     Dates: start: 20130101, end: 20130617

REACTIONS (1)
  - Malignant neoplasm of unknown primary site [Fatal]
